FAERS Safety Report 8354833-X (Version None)
Quarter: 2012Q2

REPORT INFORMATION
  Report Type: 
  Country: None (occurrence: None)
  Receive Date: 20120511
  Receipt Date: 20120508
  Transmission Date: 20120825
  Serious: Yes (Life-Threatening)
  Sender: FDA-Public Use
  Company Number: JP-ROCHE-1067451

PATIENT
  Age: 69 Year
  Sex: Male

DRUGS (11)
  1. REZALTAS [Concomitant]
     Indication: HYPERTENSION
     Dosage: 1 DOSE
     Route: 048
  2. XELODA [Suspect]
     Indication: RECTAL CANCER
     Route: 048
     Dates: start: 20120112, end: 20120420
  3. LANSOPRAZOLE [Concomitant]
     Dosage: 1 DOSE
     Route: 048
  4. NAPROXEN [Concomitant]
     Dosage: 1 DOSE
     Route: 048
  5. NICORANDIL [Concomitant]
     Indication: ANGINA PECTORIS
     Dosage: 1 DOSE
     Route: 048
  6. INDAPAMIDE [Concomitant]
     Indication: HYPERTENSION
     Dosage: 1 DOSE
     Route: 048
  7. TAMSULOSIN HCL [Concomitant]
     Indication: BENIGN PROSTATIC HYPERPLASIA
     Dosage: 1 DOSE
     Route: 048
  8. OXALIPLATIN [Suspect]
     Indication: RECTAL CANCER
     Dosage: 1 DOSE
     Route: 041
     Dates: start: 20120112
  9. AMARYL [Concomitant]
     Indication: DIABETES MELLITUS
     Dosage: 1 DOSE
     Route: 048
  10. MUCOSTA [Concomitant]
     Dosage: 1 DOSE
     Route: 048
  11. JANUVIA [Concomitant]
     Indication: DIABETES MELLITUS
     Dosage: 1 DOSE
     Route: 048

REACTIONS (2)
  - DISSEMINATED INTRAVASCULAR COAGULATION [None]
  - HEPATIC FAILURE [None]
